FAERS Safety Report 7029370-5 (Version None)
Quarter: 2010Q4

REPORT INFORMATION
  Report Type: 
  Country: None (occurrence: None)
  Receive Date: 20101005
  Receipt Date: 20100927
  Transmission Date: 20110411
  Serious: Yes (Hospitalization)
  Sender: FDA-Public Use
  Company Number: PHHO2010US04446

PATIENT
  Sex: Male

DRUGS (8)
  1. ZOLEDRONIC ACID [Suspect]
     Indication: RENAL CANCER
     Dosage: 4 MG
     Route: 042
     Dates: start: 20090420, end: 20090518
  2. SUTENT [Suspect]
     Indication: RENAL CANCER
     Dosage: 25 MG, QD
     Route: 048
     Dates: start: 20080731, end: 20100202
  3. BENDROFLUMETHIAZIDE [Concomitant]
     Indication: HYPERTENSION
     Dosage: UNK
  4. DEXAMETHASONE [Concomitant]
     Indication: APPETITE DISORDER
  5. LEVOTHYROXINE SODIUM [Concomitant]
     Indication: HYPOTHYROIDISM
  6. CODEINE [Concomitant]
     Indication: PAIN
  7. PARACETAMOL [Concomitant]
  8. OMEPRAZOLE [Concomitant]

REACTIONS (5)
  - DEHYDRATION [None]
  - DIARRHOEA [None]
  - OSTEONECROSIS OF JAW [None]
  - RENAL IMPAIRMENT [None]
  - ULCER [None]
